FAERS Safety Report 20915497 (Version 1)
Quarter: 2022Q2

REPORT INFORMATION
  Report Type: Spontaneous
  Country: US (occurrence: US)
  Receive Date: 20220604
  Receipt Date: 20220604
  Transmission Date: 20220721
  Serious: No
  Sender: FDA-Public Use
  Company Number: US-SA-SAC20220524001715

PATIENT

DRUGS (1)
  1. AUBAGIO [Suspect]
     Active Substance: TERIFLUNOMIDE
     Dosage: UNK

REACTIONS (3)
  - Chapped lips [Not Recovered/Not Resolved]
  - Cheilitis [Not Recovered/Not Resolved]
  - Rash [Not Recovered/Not Resolved]
